FAERS Safety Report 5728182-X (Version None)
Quarter: 2008Q2

REPORT INFORMATION
  Report Type: 
  Country: None (occurrence: None)
  Receive Date: 20080505
  Receipt Date: 20080424
  Transmission Date: 20081010
  Serious: Yes (Congenital Anomaly)
  Sender: FDA-Public Use
  Company Number: GB-ABBOTT-06P-167-0337577-00

PATIENT
  Sex: Male
  Weight: 3.419 kg

DRUGS (1)
  1. VALPROIC ACID [Suspect]
     Indication: DRUG EXPOSURE DURING PREGNANCY

REACTIONS (31)
  - ABNORMAL BEHAVIOUR [None]
  - AGGRESSION [None]
  - ANTISOCIAL BEHAVIOUR [None]
  - COGNITIVE DISORDER [None]
  - COMMUNICATION DISORDER [None]
  - CONGENITAL NOSE MALFORMATION [None]
  - COORDINATION ABNORMAL [None]
  - DEVELOPMENTAL DELAY [None]
  - DISTURBANCE IN ATTENTION [None]
  - DRUG EXPOSURE DURING PREGNANCY [None]
  - DYSARTHRIA [None]
  - DYSMORPHISM [None]
  - EAR INFECTION [None]
  - EAR MALFORMATION [None]
  - EXPRESSIVE LANGUAGE DISORDER [None]
  - EYE DISORDER [None]
  - FOETAL ANTICONVULSANT SYNDROME [None]
  - GENERAL PHYSICAL HEALTH DETERIORATION [None]
  - HYPERACUSIS [None]
  - HYPOKINESIA [None]
  - INCONTINENCE [None]
  - LIMB MALFORMATION [None]
  - LIP DISORDER [None]
  - NASAL CONGESTION [None]
  - PSYCHOPATHIC PERSONALITY [None]
  - SCREAMING [None]
  - SLEEP DISORDER [None]
  - SPEECH DISORDER [None]
  - SPEECH DISORDER DEVELOPMENTAL [None]
  - UNEVALUABLE EVENT [None]
  - WHEEZING [None]
